FAERS Safety Report 10351640 (Version 2)
Quarter: 2014Q3

REPORT INFORMATION
  Report Type: Report from Study
  Country: US (occurrence: US)
  Receive Date: 20140730
  Receipt Date: 20140730
  Transmission Date: 20150326
  Serious: Yes (Death, Hospitalization, Other)
  Sender: FDA-Public Use
  Company Number: US-ABBVIE-13P-163-1064582-00

PATIENT
  Age: 48 Year
  Sex: Female
  Weight: 91.25 kg

DRUGS (2)
  1. APRISO [Suspect]
     Active Substance: MESALAMINE
     Indication: CROHN^S DISEASE
     Dates: start: 20130215
  2. HUMIRA [Suspect]
     Active Substance: ADALIMUMAB
     Indication: CROHN^S DISEASE
     Dates: start: 20121211, end: 20130313

REACTIONS (7)
  - Acute febrile neutrophilic dermatosis [Not Recovered/Not Resolved]
  - Pain in extremity [Not Recovered/Not Resolved]
  - Burnout syndrome [Unknown]
  - Breast cancer metastatic [Fatal]
  - Pancreatitis [Not Recovered/Not Resolved]
  - Fatigue [Unknown]
  - Erythema nodosum [Not Recovered/Not Resolved]

NARRATIVE: CASE EVENT DATE: 20130225
